FAERS Safety Report 4704993-4 (Version None)
Quarter: 2005Q3

REPORT INFORMATION
  Report Type: 
  Country: None (occurrence: None)
  Receive Date: 20050701
  Receipt Date: 20050617
  Transmission Date: 20060218
  Serious: Yes (Life-Threatening, Hospitalization, Other)
  Sender: FDA-Public Use
  Company Number: GB-JNJFOC-20050604913

PATIENT
  Sex: Female
  Weight: 69 kg

DRUGS (8)
  1. REMICADE [Suspect]
     Indication: RHEUMATOID ARTHRITIS
     Route: 042
  2. METHOTREXATE [Concomitant]
     Route: 049
  3. DICLOFENAC SODIUM [Concomitant]
     Route: 049
  4. HUMAN MIXTARD [Concomitant]
     Route: 065
  5. HUMAN MIXTARD [Concomitant]
     Route: 065
  6. FERROUS SULFATE TAB [Concomitant]
  7. NORETHISTERONE [Concomitant]
  8. TRAMADOL HCL [Concomitant]
     Indication: RHEUMATOID ARTHRITIS
     Dosage: 5 TABLETS DAILY

REACTIONS (8)
  - CANDIDIASIS [None]
  - DIABETIC KETOACIDOSIS [None]
  - FALL [None]
  - LOWER RESPIRATORY TRACT INFECTION [None]
  - OPEN WOUND [None]
  - RENAL FAILURE [None]
  - RESPIRATORY FAILURE [None]
  - SEPSIS [None]
